FAERS Safety Report 22074643 (Version 2)
Quarter: 2023Q2

REPORT INFORMATION
  Report Type: Other
  Country: IN (occurrence: None)
  Receive Date: 20230308
  Receipt Date: 20230511
  Transmission Date: 20230721
  Serious: Yes (Other)
  Sender: FDA-Public Use
  Company Number: IN-ROCHE-3180487

PATIENT
  Age: 76 Year
  Sex: Male

DRUGS (2)
  1. TECENTRIQ [Suspect]
     Active Substance: ATEZOLIZUMAB
     Indication: Hepatocellular carcinoma
     Route: 042
     Dates: start: 20220125
  2. AVASTIN [Suspect]
     Active Substance: BEVACIZUMAB
     Indication: Hepatocellular carcinoma
     Route: 042
     Dates: start: 20220125

REACTIONS (12)
  - Lower respiratory tract infection [Unknown]
  - Bronchitis [Unknown]
  - Laryngitis [Unknown]
  - Cough [Unknown]
  - Nasopharyngitis [Unknown]
  - Asthenia [Unknown]
  - Thrombocytopenia [Unknown]
  - Spinal pain [Unknown]
  - Disease progression [Unknown]
  - Infection [Unknown]
  - Abdominal pain [Unknown]
  - Drug ineffective [Unknown]
